FAERS Safety Report 23091071 (Version 2)
Quarter: 2024Q1

REPORT INFORMATION
  Report Type: Report from Study
  Country: US (occurrence: US)
  Receive Date: 20231020
  Receipt Date: 20240208
  Transmission Date: 20240409
  Serious: Yes (Hospitalization, Other)
  Sender: FDA-Public Use
  Company Number: US-002147023-NVSC2023US225293

PATIENT
  Age: 61 Year
  Sex: Female

DRUGS (3)
  1. ENTRESTO [Suspect]
     Active Substance: SACUBITRIL\VALSARTAN
     Indication: Product used for unknown indication
     Dosage: 49.51 MG, BID (HALF IN THE AM/WHOLE IN THE PM))
     Route: 048
  2. ENTRESTO [Suspect]
     Active Substance: SACUBITRIL\VALSARTAN
     Dosage: 24.26 MG, BID
     Route: 048
     Dates: start: 20240127
  3. ELIQUIS [Concomitant]
     Active Substance: APIXABAN
     Indication: Product used for unknown indication
     Dosage: UNK
     Route: 065

REACTIONS (13)
  - Colitis [Unknown]
  - Pyrexia [Unknown]
  - Gastrointestinal haemorrhage [Unknown]
  - Vascular graft complication [Unknown]
  - Cholelithiasis [Unknown]
  - Blood urine present [Unknown]
  - Localised infection [Unknown]
  - Peripheral swelling [Unknown]
  - Dyspnoea [Unknown]
  - Somnolence [Unknown]
  - Gout [Unknown]
  - Drug ineffective [Unknown]
  - Off label use [Unknown]

NARRATIVE: CASE EVENT DATE: 20230915
